FAERS Safety Report 4591815-8 (Version None)
Quarter: 2005Q1

REPORT INFORMATION
  Report Type: 
  Country: None (occurrence: None)
  Receive Date: 20050222
  Receipt Date: 20050207
  Transmission Date: 20050727
  Serious: Yes (Other)
  Sender: FDA-Public Use
  Company Number: 2005-00476

PATIENT
  Age: 60 Year
  Sex: Female
  Weight: 56.7 kg

DRUGS (2)
  1. PREDNISONE [Suspect]
     Indication: SARCOIDOSIS
     Dosage: SEE IMAGE
     Route: 048
     Dates: start: 19950101, end: 20041101
  2. PREDNISONE [Suspect]
     Indication: SARCOIDOSIS
     Dosage: SEE IMAGE
     Route: 048
     Dates: start: 20041101, end: 20041228

REACTIONS (1)
  - BREAST CANCER FEMALE [None]
